FAERS Safety Report 8310746 (Version 8)
Quarter: 2014Q2

REPORT INFORMATION
  Report Type: Report from Study
  Country: JP (occurrence: JP)
  Receive Date: 20111226
  Receipt Date: 20140613
  Transmission Date: 20141212
  Serious: Yes (Hospitalization, Other)
  Sender: FDA-Public Use
  Company Number: JP-AMGEN-JPNSP2011059808

PATIENT
  Age: 73 Year
  Sex: Male
  Weight: 72 kg

DRUGS (15)
  1. ROMIPLOSTIM - KHK [Suspect]
     Indication: IMMUNE THROMBOCYTOPENIC PURPURA
     Dosage: 1 MUG/KG, QD
     Route: 058
     Dates: start: 20110805
  2. PREDONINE [Concomitant]
     Indication: IMMUNE THROMBOCYTOPENIC PURPURA
     Dosage: 12.5 MG, QD
     Route: 048
     Dates: start: 20110714, end: 20120830
  3. ALLORIN [Concomitant]
     Indication: HYPERURICAEMIA
     Dosage: UNK
     Route: 048
  4. MADOPAR [Concomitant]
     Indication: PARKINSON^S DISEASE
     Route: 048
  5. MADOPAR [Concomitant]
     Dosage: UNK
     Route: 048
  6. PARIET [Concomitant]
     Indication: PROPHYLAXIS
     Dosage: UNK
     Route: 048
  7. LENDEM [Concomitant]
     Indication: INSOMNIA
     Dosage: UNK
     Route: 048
  8. BONALON [Concomitant]
     Indication: PROPHYLAXIS
     Dosage: UNK
     Route: 048
  9. MICARDIS [Concomitant]
     Indication: HYPERTENSION
     Dosage: 40 MG, QD
     Route: 048
  10. MICARDIS [Concomitant]
     Dosage: 40 MG, UNK
     Route: 048
  11. TERMISIL [Concomitant]
     Indication: CONSTIPATION
     Dosage: UNK
     Route: 048
  12. LECICARBON [Concomitant]
     Indication: CONSTIPATION
     Dosage: UNK
     Route: 054
  13. MAGMITT [Concomitant]
     Indication: CONSTIPATION
     Dosage: UNK
     Route: 048
  14. PURSENNID [Concomitant]
     Indication: CONSTIPATION
     Dosage: UNK
     Route: 048
  15. CRESTOR [Concomitant]
     Indication: HYPERLIPIDAEMIA
     Dosage: UNK
     Route: 048

REACTIONS (7)
  - Pulmonary embolism [Recovered/Resolved]
  - Deep vein thrombosis [Recovered/Resolved]
  - Osteonecrosis [Recovering/Resolving]
  - Pharyngitis [Recovered/Resolved]
  - Tinea pedis [Recovered/Resolved]
  - Constipation [Recovering/Resolving]
  - Dizziness [Recovered/Resolved]
